FAERS Safety Report 10241725 (Version 1)
Quarter: 2014Q2

REPORT INFORMATION
  Report Type: Spontaneous
  Country: US (occurrence: US)
  Receive Date: 20140617
  Receipt Date: 20140617
  Transmission Date: 20141212
  Serious: No
  Sender: FDA-Public Use
  Company Number: US-009507513-1405USA001295

PATIENT
  Sex: Female

DRUGS (4)
  1. CHLOR-TRIMETON ALLERGY 4 HOUR TABLETS [Suspect]
     Indication: RASH
     Dosage: 1/4 OR 1/8TH DF, QD
     Route: 048
     Dates: start: 201310
  2. CHLOR-TRIMETON ALLERGY 4 HOUR TABLETS [Suspect]
     Indication: HYPERSENSITIVITY
  3. CHLOR-TRIMETON ALLERGY 4 HOUR TABLETS [Suspect]
     Indication: ANXIETY
  4. CHLOR-TRIMETON ALLERGY 4 HOUR TABLETS [Suspect]
     Indication: SLEEP DISORDER

REACTIONS (5)
  - Dry eye [Unknown]
  - Dry skin [Unknown]
  - Underdose [Unknown]
  - Therapeutic response changed [Unknown]
  - Off label use [Unknown]
